FAERS Safety Report 12778979 (Version 3)
Quarter: 2018Q3

REPORT INFORMATION
  Report Type: Spontaneous
  Country: US (occurrence: US)
  Receive Date: 20160926
  Receipt Date: 20180802
  Transmission Date: 20181010
  Serious: No
  Sender: FDA-Public Use
  Company Number: US-JAZZ-2016-US-011417

PATIENT
  Sex: Female

DRUGS (43)
  1. XYREM [Suspect]
     Active Substance: SODIUM OXYBATE
     Dosage: DOSE ADJUSTMENTS
     Route: 048
     Dates: start: 201104, end: 201104
  2. XYREM [Suspect]
     Active Substance: SODIUM OXYBATE
     Dosage: 4.5 G, BID
     Route: 048
     Dates: start: 201104, end: 2011
  3. XYREM [Suspect]
     Active Substance: SODIUM OXYBATE
     Dosage: 3 G, BID
     Route: 048
     Dates: start: 201202, end: 201208
  4. SYNTHROID [Concomitant]
     Active Substance: LEVOTHYROXINE SODIUM
  5. FERROUS SULFATE. [Concomitant]
     Active Substance: FERROUS SULFATE
  6. MICONAZOLE NITRATE. [Concomitant]
     Active Substance: MICONAZOLE NITRATE
  7. XYREM [Suspect]
     Active Substance: SODIUM OXYBATE
     Dosage: 2.25 G, BID
     Route: 048
     Dates: start: 201202, end: 201202
  8. LORAZEPAM. [Concomitant]
     Active Substance: LORAZEPAM
  9. TRAMADOL HCL [Concomitant]
     Active Substance: TRAMADOL HYDROCHLORIDE
  10. BIOTIN [Concomitant]
     Active Substance: BIOTIN
  11. ERGOCALCIFEROL. [Concomitant]
     Active Substance: ERGOCALCIFEROL
  12. PROLIA [Concomitant]
     Active Substance: DENOSUMAB
  13. FLUTICASONE PROPIONATE. [Concomitant]
     Active Substance: FLUTICASONE PROPIONATE
  14. BESIVANCE [Concomitant]
     Active Substance: BESIFLOXACIN
  15. VITAMIN B COMPLEX                  /00003501/ [Concomitant]
     Active Substance: CALCIUM PANTOTHENATE\NIACINAMIDE\PYRIDOXINE HYDROCHLORIDE\RIBOFLAVIN\THIAMINE HYDROCHLORIDE
  16. ORTHOVISC [Concomitant]
     Active Substance: HYALURONIC ACID
  17. MAGNESIUM CARBONAT [Concomitant]
  18. XARELTO [Concomitant]
     Active Substance: RIVAROXABAN
  19. CYANOCOBALAMIN. [Concomitant]
     Active Substance: CYANOCOBALAMIN
  20. DEPO?MEDROL [Concomitant]
     Active Substance: METHYLPREDNISOLONE ACETATE
  21. PREDNISONE. [Concomitant]
     Active Substance: PREDNISONE
  22. ALENDRONATE SODIUM. [Concomitant]
     Active Substance: ALENDRONATE SODIUM
  23. XYREM [Suspect]
     Active Substance: SODIUM OXYBATE
     Dosage: 4.5 G, BID
     Route: 048
     Dates: start: 201208
  24. VITAMIN B12 [Concomitant]
     Active Substance: CYANOCOBALAMIN
  25. GABAPENTIN. [Concomitant]
     Active Substance: GABAPENTIN
  26. CLOTRIMAZOLE. [Concomitant]
     Active Substance: CLOTRIMAZOLE
  27. PARAFFIN, LIQUID W/PETROLATUM/WOOL FAT [Concomitant]
  28. BROMDAY [Concomitant]
     Active Substance: BROMFENAC SODIUM
  29. TYLENOL ARTHRITIS PAIN [Suspect]
     Active Substance: ACETAMINOPHEN
     Indication: PRODUCT USED FOR UNKNOWN INDICATION
  30. IBUPROFEN. [Concomitant]
     Active Substance: IBUPROFEN
  31. SYSTANE (HYPROMELLOSE 2910 (4000 MPA.S)) [Concomitant]
     Active Substance: HYPROMELLOSE 2910 (4000 MPA.S)
  32. TOLNAFTATE. [Concomitant]
     Active Substance: TOLNAFTATE
  33. LIDOCAINE HYDROCHLORIDE. [Concomitant]
     Active Substance: LIDOCAINE HYDROCHLORIDE
  34. CLINDAMYCIN HYDROCHLORIDE. [Concomitant]
     Active Substance: CLINDAMYCIN HYDROCHLORIDE
  35. IMODIUM A?D [Concomitant]
     Active Substance: LOPERAMIDE HYDROCHLORIDE
  36. XYREM [Suspect]
     Active Substance: SODIUM OXYBATE
     Indication: NARCOLEPSY
     Dosage: 2.25 G, BID
     Route: 048
     Dates: start: 201103, end: 201104
  37. PLANTAGO OVATA [Concomitant]
     Active Substance: HERBALS\PLANTAGO OVATA LEAF
  38. VITAMIN D3 [Concomitant]
     Active Substance: CHOLECALCIFEROL
  39. LOSARTAN POTASSIUM. [Concomitant]
     Active Substance: LOSARTAN POTASSIUM
  40. DUREZOL [Concomitant]
     Active Substance: DIFLUPREDNATE
  41. ZANTAC [Concomitant]
     Active Substance: RANITIDINE HYDROCHLORIDE
  42. HYDROCORTISONE ACETATE. [Concomitant]
     Active Substance: HYDROCORTISONE ACETATE
  43. PROZAC [Concomitant]
     Active Substance: FLUOXETINE HYDROCHLORIDE

REACTIONS (2)
  - Arthritis [Not Recovered/Not Resolved]
  - Diarrhoea [Unknown]
